FAERS Safety Report 9825220 (Version 2)
Quarter: 2014Q1

REPORT INFORMATION
  Report Type: Spontaneous
  Country: BE (occurrence: BE)
  Receive Date: 20140117
  Receipt Date: 20140117
  Transmission Date: 20141002
  Serious: Yes (Disabling)
  Sender: FDA-Public Use
  Company Number: BE-ASTRAZENECA-2013SE93363

PATIENT
  Age: 19430 Day
  Sex: Male
  Weight: 90 kg

DRUGS (5)
  1. BRILIQUE [Suspect]
     Indication: ACUTE CORONARY SYNDROME
     Route: 048
     Dates: start: 2013
  2. BRILIQUE [Suspect]
     Indication: CORONARY ANGIOPLASTY
     Route: 048
     Dates: start: 2013
  3. BRILIQUE [Suspect]
     Indication: CORONARY ARTERIAL STENT INSERTION
     Route: 048
     Dates: start: 2013
  4. AMLOR [Suspect]
     Indication: HYPERTENSION
     Route: 065
     Dates: start: 2011
  5. TOTALIP [Concomitant]

REACTIONS (3)
  - Neuropathy peripheral [Not Recovered/Not Resolved]
  - Oedema peripheral [Recovering/Resolving]
  - Neuralgia [Unknown]
